FAERS Safety Report 6810901-2 (Version None)
Quarter: 2010Q2

REPORT INFORMATION
  Report Type: 
  Country: None (occurrence: None)
  Receive Date: 20100630
  Receipt Date: 20081006
  Transmission Date: 20101027
  Serious: No
  Sender: FDA-Public Use
  Company Number: US-PFIZER INC-2008069572

PATIENT
  Sex: Female
  Weight: 64.41 kg

DRUGS (1)
  1. ESTRING [Suspect]
     Indication: VULVOVAGINAL DRYNESS
     Dates: start: 20070627, end: 20080801

REACTIONS (7)
  - ABDOMINAL DISTENSION [None]
  - ABDOMINAL PAIN UPPER [None]
  - FUNGAL INFECTION [None]
  - MUSCLE SPASMS [None]
  - NAUSEA [None]
  - VAGINAL DISCHARGE [None]
  - VULVOVAGINAL DRYNESS [None]
